FAERS Safety Report 7654365-8 (Version None)
Quarter: 2011Q3

REPORT INFORMATION
  Report Type: 
  Country: None (occurrence: None)
  Receive Date: 20110803
  Receipt Date: 20110729
  Transmission Date: 20111222
  Serious: Yes (Death)
  Sender: FDA-Public Use
  Company Number: KR-PFIZER INC-2010074337

PATIENT
  Age: 31 Year
  Sex: Male
  Weight: 85.5 kg

DRUGS (4)
  1. ELOXATIN [Suspect]
     Indication: METASTATIC GASTRIC CANCER
     Dosage: 218 MG, EVERY 3 WEEKS
     Route: 042
     Dates: start: 20090811, end: 20091210
  2. XELODA [Suspect]
     Indication: METASTATIC GASTRIC CANCER
     Dosage: 2000 MG, 2X/DAY, DAY 1-14
     Route: 048
     Dates: start: 20090811, end: 20100607
  3. ACETAMINOPHEN [Concomitant]
     Indication: ANALGESIC THERAPY
     Dosage: 650 MG, 3X/DAY
     Route: 048
     Dates: start: 20100601
  4. SUNITINIB MALATE [Suspect]
     Indication: METASTATIC GASTRIC CANCER
     Dosage: 25 MG, 1X/DAY, 2/1 SCHEDULE
     Route: 048
     Dates: start: 20090811, end: 20100606

REACTIONS (1)
  - PNEUMONIA [None]
